FAERS Safety Report 18119961 (Version 3)
Quarter: 2022Q2

REPORT INFORMATION
  Report Type: Spontaneous
  Country: CH (occurrence: DE)
  Receive Date: 20200806
  Receipt Date: 20220608
  Transmission Date: 20220721
  Serious: Yes (Other)
  Sender: FDA-Public Use
  Company Number: CH-SUN PHARMACEUTICAL INDUSTRIES LTD-2020R1-255617

PATIENT
  Age: 60 Year
  Sex: Female

DRUGS (7)
  1. CLOZAPINE [Suspect]
     Active Substance: CLOZAPINE
     Indication: Product used for unknown indication
     Dosage: UNK
     Route: 065
  2. CLOZAPINE [Suspect]
     Active Substance: CLOZAPINE
     Indication: Product used for unknown indication
  3. HALOPERIDOL [Suspect]
     Active Substance: HALOPERIDOL
     Indication: Product used for unknown indication
     Dosage: 10MG PER DAY
     Route: 065
  4. LITHIUM [Suspect]
     Active Substance: LITHIUM
     Indication: Schizoaffective disorder
     Dosage: UNK
     Route: 065
  5. OLANZAPINE [Suspect]
     Active Substance: OLANZAPINE
     Indication: Product used for unknown indication
     Dosage: 5MG UNKNOWN ()
     Route: 065
  6. QUETIAPINE [Suspect]
     Active Substance: QUETIAPINE
     Indication: Product used for unknown indication
     Dosage: 200MG UNKNOWN ()
     Route: 065
  7. RISPERIDONE [Interacting]
     Active Substance: RISPERIDONE
     Indication: Schizoaffective disorder
     Dosage: 6 MILLIGRAM, DAILY
     Route: 065

REACTIONS (39)
  - Drug interaction [Unknown]
  - Neurotoxicity [Unknown]
  - Hyponatraemia [Unknown]
  - Suicide attempt [Unknown]
  - Somnolence [Unknown]
  - Chills [Unknown]
  - Encephalopathy [Unknown]
  - Paranoia [Unknown]
  - Depression [Unknown]
  - Drug interaction [Unknown]
  - Gait disturbance [Unknown]
  - Tremor [Unknown]
  - Drug hypersensitivity [Unknown]
  - Memory impairment [Unknown]
  - Tremor [Unknown]
  - Pyrexia [Unknown]
  - Akathisia [Unknown]
  - Visual impairment [Unknown]
  - Suicidal ideation [Unknown]
  - Disorientation [Unknown]
  - Salivary hypersecretion [Unknown]
  - Anxiety [Unknown]
  - Delirium [Unknown]
  - Echolalia [Unknown]
  - Memory impairment [Unknown]
  - Antinuclear antibody positive [Unknown]
  - Blood creatine phosphokinase increased [Recovered/Resolved]
  - Cognitive disorder [Unknown]
  - Delirium [Unknown]
  - Movement disorder [Unknown]
  - Depressed mood [Unknown]
  - Asthenia [Unknown]
  - Psychomotor hyperactivity [Unknown]
  - Psychotic disorder due to a general medical condition [Unknown]
  - Feeling guilty [Unknown]
  - Neuroleptic malignant syndrome [Unknown]
  - Bradykinesia [Unknown]
  - Disturbance in attention [Unknown]
  - Nuchal rigidity [Unknown]
